FAERS Safety Report 13645280 (Version 1)
Quarter: 2017Q2

REPORT INFORMATION
  Report Type: Spontaneous
  Country: US (occurrence: US)
  Receive Date: 20170612
  Receipt Date: 20170612
  Transmission Date: 20170830
  Serious: No
  Sender: FDA-Public Use
  Company Number: US-ROCHE-1548462

PATIENT
  Sex: Female

DRUGS (1)
  1. XELODA [Suspect]
     Active Substance: CAPECITABINE
     Indication: PRODUCT USED FOR UNKNOWN INDICATION
     Dosage: 3 BID 7 DAYS ON, 7 OFF
     Route: 048
     Dates: start: 20150114

REACTIONS (3)
  - Nausea [Unknown]
  - Back pain [Unknown]
  - Diarrhoea [Unknown]
